FAERS Safety Report 25137841 (Version 2)
Quarter: 2025Q4

REPORT INFORMATION
  Report Type: Spontaneous
  Country: EU (occurrence: EU)
  Receive Date: 20250329
  Receipt Date: 20251010
  Transmission Date: 20260118
  Serious: Yes (Other)
  Sender: ABBVIE
  Company Number: EU-RECORDATI-2024004592

PATIENT
  Age: 52 Year
  Sex: Female
  Weight: 64 kg

DRUGS (16)
  1. CARIPRAZINE [Suspect]
     Active Substance: CARIPRAZINE
     Indication: Schizoaffective disorder
     Dosage: 3 MILLIGRAM, QD
     Route: 048
     Dates: start: 20240617
  2. CARIPRAZINE [Suspect]
     Active Substance: CARIPRAZINE
     Indication: Schizoaffective disorder
     Dosage: 1.5 MILLIGRAM, QD
     Route: 048
     Dates: start: 20240102, end: 20240618
  3. CARIPRAZINE [Suspect]
     Active Substance: CARIPRAZINE
     Indication: Schizoaffective disorder
     Dosage: 4.5 MILLIGRAM, QD
     Route: 048
     Dates: start: 20240801
  4. CARIPRAZINE [Suspect]
     Active Substance: CARIPRAZINE
     Indication: Schizoaffective disorder
     Dosage: 3 MILLIGRAMS
     Route: 048
     Dates: start: 20250201
  5. CARIPRAZINE [Suspect]
     Active Substance: CARIPRAZINE
     Indication: Schizoaffective disorder
     Dosage: 1.5 MILLIGRAM
     Route: 048
     Dates: start: 20240423
  6. CARIPRAZINE [Suspect]
     Active Substance: CARIPRAZINE
     Indication: Schizoaffective disorder
     Dosage: 1.5 MILLIGRAM, QD
     Route: 048
     Dates: start: 20240425, end: 20240618
  7. Calmedoron [Concomitant]
     Indication: Feeling of relaxation
     Dosage: 20 DROP, QD (AT NIGHT)
     Route: 048
     Dates: start: 20230901
  8. BISOPROLOL FUMARATE [Concomitant]
     Active Substance: BISOPROLOL FUMARATE
     Indication: Heart rate increased
     Dosage: 2.5 MILLIGRAMS, QD
     Route: 048
  9. BISOPROLOL FUMARATE [Concomitant]
     Active Substance: BISOPROLOL FUMARATE
     Indication: Heart rate increased
     Dosage: 1.25 MILLIGRAM, QD
     Route: 048
     Dates: start: 2018, end: 20250130
  10. BISOPROLOL FUMARATE [Concomitant]
     Active Substance: BISOPROLOL FUMARATE
     Indication: Heart rate increased
     Dosage: 1.25 MILLIGRAM, QD
     Route: 048
     Dates: start: 20230816
  11. CLOZAPINE [Concomitant]
     Active Substance: CLOZAPINE
     Indication: Schizoaffective disorder
     Dosage: 400 MILLIGRAM, QD
     Route: 048
     Dates: start: 20170503
  12. CLOZAPINE [Concomitant]
     Active Substance: CLOZAPINE
     Indication: Schizoaffective disorder
     Dosage: 300 MILLIGRAM, QD
     Route: 048
     Dates: start: 20240617
  13. CLOZAPINE [Concomitant]
     Active Substance: CLOZAPINE
     Indication: Schizoaffective disorder
     Dosage: 350 MILLIGRAM, QD
     Route: 048
     Dates: start: 20240603
  14. CLOZAPINE [Concomitant]
     Active Substance: CLOZAPINE
     Indication: Schizoaffective disorder
     Dosage: 250 MILLIGRAM
     Route: 048
     Dates: start: 20240801
  15. LORAZEPAM [Concomitant]
     Active Substance: LORAZEPAM
     Indication: Feeling of relaxation
     Dosage: UNK
     Route: 065
  16. LORAZEPAM [Concomitant]
     Active Substance: LORAZEPAM
     Indication: Feeling of relaxation
     Route: 065

REACTIONS (32)
  - Syncope [Unknown]
  - Lacrimation increased [Not Recovered/Not Resolved]
  - Urinary incontinence [Unknown]
  - Lacrimation increased [Unknown]
  - Salivary hypersecretion [Recovered/Resolved]
  - Hunger [Unknown]
  - Product use in unapproved indication [Unknown]
  - Condition aggravated [Unknown]
  - Somnolence [Recovered/Resolved]
  - Anal incontinence [Unknown]
  - Bradyphrenia [Recovered/Resolved]
  - Thirst [Recovered/Resolved]
  - Dizziness [Recovered/Resolved]
  - Psoriasis [Unknown]
  - Tongue movement disturbance [Recovered/Resolved]
  - Vision blurred [Recovered/Resolved]
  - Decreased interest [Recovered/Resolved]
  - Contusion [Unknown]
  - Fatigue [Recovered/Resolved]
  - Behaviour disorder [Unknown]
  - Muscle spasms [Recovered/Resolved]
  - Bruxism [Recovered/Resolved]
  - Heart rate increased [Recovered/Resolved]
  - Food craving [Unknown]
  - Skin disorder [Unknown]
  - Spider vein [Recovered/Resolved]
  - Decreased appetite [Recovered/Resolved]
  - Tinnitus [Unknown]
  - Hyperhidrosis [Unknown]
  - Rhinorrhoea [Unknown]
  - Hypoaesthesia [Recovered/Resolved]
  - Accommodation disorder [Recovered/Resolved]

NARRATIVE: CASE EVENT DATE: 20240101
